FAERS Safety Report 9206459 (Version 1)
Quarter: 2013Q2

REPORT INFORMATION
  Report Type: Spontaneous
  Country: IT (occurrence: IT)
  Receive Date: 20130403
  Receipt Date: 20130403
  Transmission Date: 20140414
  Serious: Yes (Hospitalization, Other)
  Sender: FDA-Public Use
  Company Number: IT-PFIZER INC-2013102870

PATIENT
  Age: 64 Year
  Sex: Male
  Weight: 104 kg

DRUGS (7)
  1. EPIRUBICIN HCL [Suspect]
     Indication: SARCOMA
     Dosage: 120 MG TOTAL
     Route: 042
     Dates: start: 20130226, end: 20130227
  2. IFOSFAMIDE [Suspect]
     Indication: SARCOMA
     Dosage: 6 G TOTAL
     Route: 041
     Dates: start: 20130226, end: 20130228
  3. MICARDIPLUS [Concomitant]
     Dosage: UNK
  4. FILGRASTIM [Concomitant]
     Dosage: UNK
     Dates: start: 20130303, end: 20130307
  5. MESNA [Concomitant]
     Dosage: UNK
     Dates: start: 20130226, end: 20130228
  6. LANSOPRAZOLE [Concomitant]
  7. ALFUZOSIN HYDROCHLORIDE [Concomitant]

REACTIONS (1)
  - Pancytopenia [Recovering/Resolving]
